FAERS Safety Report 16125440 (Version 1)
Quarter: 2019Q1

REPORT INFORMATION
  Report Type: Report from Study
  Country: US (occurrence: US)
  Receive Date: 20190327
  Receipt Date: 20190327
  Transmission Date: 20190418
  Serious: Yes (Other)
  Sender: FDA-Public Use
  Company Number: US-BIOGEN-2018BI00527880

PATIENT
  Age: 47 Year
  Sex: Female

DRUGS (3)
  1. TECFIDERA [Suspect]
     Active Substance: DIMETHYL FUMARATE
     Dosage: MAINTENANCE DOSE
     Route: 050
     Dates: start: 201712
  2. TECFIDERA [Suspect]
     Active Substance: DIMETHYL FUMARATE
     Dosage: MAINTENANCE DOSE
     Route: 050
     Dates: start: 20180115
  3. TECFIDERA [Suspect]
     Active Substance: DIMETHYL FUMARATE
     Indication: MULTIPLE SCLEROSIS
     Dosage: STARTING DOSE
     Route: 048

REACTIONS (19)
  - Gastrointestinal haemorrhage [Unknown]
  - Oesophagitis [Unknown]
  - Increased appetite [Recovered/Resolved]
  - Fall [Unknown]
  - Hot flush [Unknown]
  - Decreased interest [Unknown]
  - Pain [Unknown]
  - Optic neuritis [Unknown]
  - Dysarthria [Not Recovered/Not Resolved]
  - Depression [Unknown]
  - Flushing [Unknown]
  - Hiatus hernia [Unknown]
  - Insomnia [Recovered/Resolved]
  - Product dose omission [Recovered/Resolved]
  - Hand fracture [Recovered/Resolved]
  - Migraine with aura [Unknown]
  - Gastric ulcer [Unknown]
  - Gastrooesophageal reflux disease [Unknown]
  - Anger [Recovered/Resolved]

NARRATIVE: CASE EVENT DATE: 201801
